FAERS Safety Report 4322418-8 (Version None)
Quarter: 2004Q1

REPORT INFORMATION
  Report Type: 
  Country: None (occurrence: None)
  Receive Date: 20040319
  Receipt Date: 20040309
  Transmission Date: 20041129
  Serious: Yes (Other)
  Sender: FDA-Public Use
  Company Number: 2004016405

PATIENT
  Age: 45 Year
  Sex: Female
  Weight: 60 kg

DRUGS (4)
  1. VFEND [Suspect]
     Indication: BRONCHOPULMONARY ASPERGILLOSIS
     Dosage: 400 MG, ORAL
     Route: 048
     Dates: start: 20040126
  2. CYCLOPHOSPHAMIDE [Suspect]
     Indication: CHEMOTHERAPY
     Dosage: 3558 MG, INTRAVENOUS
     Route: 042
     Dates: start: 20040201, end: 20040202
  3. CYCLOSPORINE [Concomitant]
  4. BUSULFAN (BUSULFAN) [Concomitant]

REACTIONS (2)
  - DRUG INTERACTION [None]
  - VENOOCCLUSIVE LIVER DISEASE [None]
